FAERS Safety Report 9743839 (Version 1)
Quarter: 2013Q4

REPORT INFORMATION
  Report Type: Spontaneous
  Country: US (occurrence: US)
  Receive Date: 20131210
  Receipt Date: 20131210
  Transmission Date: 20140711
  Serious: No
  Sender: FDA-Public Use
  Company Number: US-BIOGENIDEC-2013BI096785

PATIENT
  Sex: Male
  Weight: 73 kg

DRUGS (4)
  1. TECFIDERA [Suspect]
     Indication: PRODUCT USED FOR UNKNOWN INDICATION
     Route: 048
  2. OMEGA 3 [Concomitant]
  3. VITAMIN B COMPLEX [Concomitant]
  4. ASPIRIN [Concomitant]

REACTIONS (2)
  - Neck pain [Unknown]
  - Back pain [Unknown]
